FAERS Safety Report 9859435 (Version 1)
Quarter: 2014Q1

REPORT INFORMATION
  Report Type: Spontaneous
  Country: US (occurrence: US)
  Receive Date: 20140131
  Receipt Date: 20140131
  Transmission Date: 20141002
  Serious: No
  Sender: FDA-Public Use
  Company Number: US-BAYER-2014-016369

PATIENT
  Sex: Male

DRUGS (1)
  1. ADEMPAS [Suspect]
     Indication: PRODUCT USED FOR UNKNOWN INDICATION
     Dosage: 3 DOSE TITRATION

REACTIONS (3)
  - Palpitations [None]
  - Dyspnoea [None]
  - General physical health deterioration [None]
